FAERS Safety Report 4503378-3 (Version None)
Quarter: 2004Q4

REPORT INFORMATION
  Report Type: 
  Country: None (occurrence: None)
  Receive Date: 20041117
  Receipt Date: 20041115
  Transmission Date: 20050328
  Serious: Yes (Other)
  Sender: FDA-Public Use
  Company Number: US-GLAXOSMITHKLINE-A0533962A

PATIENT
  Age: 49 Year
  Sex: Female

DRUGS (13)
  1. ZIAGEN [Suspect]
     Indication: HIV INFECTION
     Dosage: 300MG TWICE PER DAY
     Route: 048
     Dates: start: 20040901
  2. EPIVIR [Concomitant]
  3. ATAZANAVIR [Concomitant]
  4. PANCREATIC ENZYMES [Concomitant]
  5. FUROSEMIDE [Concomitant]
  6. METHADONE [Concomitant]
  7. ACYCLOVIR [Concomitant]
  8. DAPSONE [Concomitant]
  9. INSULIN [Concomitant]
  10. XANAX [Concomitant]
  11. REGLAN [Concomitant]
  12. PHENERGAN [Concomitant]
  13. PREDNISONE [Concomitant]

REACTIONS (1)
  - APLASTIC ANAEMIA [None]
